FAERS Safety Report 25617600 (Version 3)
Quarter: 2025Q3

REPORT INFORMATION
  Report Type: Spontaneous
  Country: EU (occurrence: EU)
  Receive Date: 20250729
  Receipt Date: 20250916
  Transmission Date: 20251020
  Serious: Yes (Hospitalization, Other)
  Sender: SANOFI AVENTIS
  Company Number: EU-DialogSolutions-SAAVPROD-PI802566-C1

PATIENT
  Age: 74 Year
  Sex: Male

DRUGS (8)
  1. GLIMEPIRIDE [Suspect]
     Active Substance: GLIMEPIRIDE
     Indication: Diabetes mellitus
     Dosage: 3 MG, QD
     Dates: start: 2009
  2. METFORMIN HYDROCHLORIDE [Suspect]
     Active Substance: METFORMIN HYDROCHLORIDE
     Indication: Diabetes mellitus
     Dosage: 850 MG, TID
     Dates: start: 2009
  3. NIFEDIPINE [Suspect]
     Active Substance: NIFEDIPINE
     Indication: Hypertension
     Dosage: 20 MG, BID ONCE IN THE MORNING AND ONCE IN THE EVENING FOR OVER 10 YEARS
     Dates: start: 2014
  4. LOSARTAN AND HYDROCHLOROTHIAZIDE [Suspect]
     Active Substance: HYDROCHLOROTHIAZIDE\LOSARTAN POTASSIUM
     Indication: Hypertension
     Dosage: 50/12.5 MG ONCE DAILY IN THE MORNING FOR OVER 10 YEARS
     Dates: start: 2014
  5. MOXONIDINE [Suspect]
     Active Substance: MOXONIDINE
     Indication: Hypertension
     Dosage: 0.2 MG, BID ONCE IN THE MORNING AND ONCE IN THE EVENING FOR OVER 5 YEARS
     Dates: start: 2019
  6. METOPROLOL TARTRATE [Suspect]
     Active Substance: METOPROLOL TARTRATE
     Indication: Hypertension
     Dosage: 50 MG, QD HALF A TABLET ONCE DAILY FOR THE PAST 3 YEARS
     Dates: start: 2021
  7. PENTOXIFYLLINE [Concomitant]
     Active Substance: PENTOXIFYLLINE
     Dosage: 400 MG, QD
     Dates: start: 2004
  8. THIOCTIC ACID [Concomitant]
     Active Substance: THIOCTIC ACID
     Dosage: 600 MG, QD
     Dates: start: 2004

REACTIONS (5)
  - Skin cancer [Recovered/Resolved]
  - Basal cell carcinoma [Recovered/Resolved]
  - Skin squamous cell carcinoma recurrent [Recovered/Resolved]
  - Tumour ulceration [Recovered/Resolved]
  - Lymphadenopathy [Recovered/Resolved]

NARRATIVE: CASE EVENT DATE: 20200101
